FAERS Safety Report 17389173 (Version 4)
Quarter: 2020Q1

REPORT INFORMATION
  Report Type: Report from Study
  Country: None (occurrence: US)
  Receive Date: 20200206
  Receipt Date: 20200325
  Transmission Date: 20200409
  Serious: Yes (Hospitalization, Other)
  Sender: FDA-Public Use
  Company Number: US-ABBVIE-20K-163-3265427-00

PATIENT
  Age: 76 Year
  Sex: Male
  Weight: 75.46 kg

DRUGS (1)
  1. DUOPA [Suspect]
     Active Substance: CARBIDOPA\LEVODOPA
     Indication: PARKINSON^S DISEASE
     Route: 050
     Dates: start: 201804

REACTIONS (9)
  - Heart valve incompetence [Recovered/Resolved]
  - Atrial fibrillation [Recovering/Resolving]
  - Fluid retention [Recovered/Resolved]
  - Cardiac failure [Recovering/Resolving]
  - Pneumothorax [Recovered/Resolved]
  - Heart valve operation [Recovering/Resolving]
  - Cardiac failure congestive [Recovering/Resolving]
  - Cardiac dysfunction [Recovering/Resolving]
  - Pleural effusion [Recovering/Resolving]

NARRATIVE: CASE EVENT DATE: 201906
